FAERS Safety Report 14908887 (Version 3)
Quarter: 2018Q3

REPORT INFORMATION
  Report Type: Spontaneous
  Country: US (occurrence: US)
  Receive Date: 20180517
  Receipt Date: 20180712
  Transmission Date: 20181010
  Serious: No
  Sender: FDA-Public Use
  Company Number: US-HORIZON-PEN-0349-2018

PATIENT
  Age: 70 Year
  Sex: Female

DRUGS (17)
  1. CARVEDILOL. [Concomitant]
     Active Substance: CARVEDILOL
  2. VITAMIN D [Concomitant]
     Active Substance: CHOLECALCIFEROL
  3. CALCIUM [Concomitant]
     Active Substance: CALCIUM
  4. HUMALOG [Concomitant]
     Active Substance: INSULIN LISPRO
  5. PENNSAID [Suspect]
     Active Substance: DICLOFENAC SODIUM
     Indication: PSORIATIC ARTHROPATHY
     Dosage: 1 PACKET IN THE MORNING AND ONE BEFOR BED
     Dates: start: 201804
  6. SPIRONOLACTONE. [Concomitant]
     Active Substance: SPIRONOLACTONE
  7. FUROSEMIDE. [Concomitant]
     Active Substance: FUROSEMIDE
  8. FOLIC ACID. [Concomitant]
     Active Substance: FOLIC ACID
  9. VITAMIN B12 [Concomitant]
     Active Substance: CYANOCOBALAMIN
  10. VITAMIN C [Concomitant]
     Active Substance: ASCORBIC ACID
  11. LANTUS [Concomitant]
     Active Substance: INSULIN GLARGINE
  12. DIGOXINE [Concomitant]
     Active Substance: DIGOXIN
  13. ANASTRAZOLE [Concomitant]
     Active Substance: ANASTROZOLE
  14. LOSARTAN. [Concomitant]
     Active Substance: LOSARTAN
  15. VENTOLYN [Concomitant]
  16. MAGOX [Concomitant]
  17. METHOTREXATE. [Concomitant]
     Active Substance: METHOTREXATE

REACTIONS (4)
  - Application site dryness [Recovered/Resolved]
  - Application site exfoliation [Recovered/Resolved]
  - Insurance issue [Unknown]
  - Off label use [Unknown]

NARRATIVE: CASE EVENT DATE: 201804
